FAERS Safety Report 24604337 (Version 1)
Quarter: 2024Q4

REPORT INFORMATION
  Report Type: Spontaneous
  Country: US (occurrence: US)
  Receive Date: 20241111
  Receipt Date: 20241111
  Transmission Date: 20250115
  Serious: No
  Sender: PFIZER
  Company Number: US-PFIZER INC-202400292268

PATIENT
  Age: 26 Year
  Sex: Female
  Weight: 72.57 kg

DRUGS (5)
  1. CIBINQO [Interacting]
     Active Substance: ABROCITINIB
     Indication: Eczema
     Dosage: 100 MG
  2. CIBINQO [Interacting]
     Active Substance: ABROCITINIB
     Indication: Dermatitis
     Dosage: 200 MG, 1X/DAY
     Route: 048
  3. CIBINQO [Interacting]
     Active Substance: ABROCITINIB
     Indication: Neurodermatitis
  4. PROZAC [Interacting]
     Active Substance: FLUOXETINE HYDROCHLORIDE
     Dosage: UNK
  5. ADBRY [Concomitant]
     Active Substance: TRALOKINUMAB-LDRM
     Dosage: 300 MG

REACTIONS (1)
  - Drug interaction [Unknown]
